FAERS Safety Report 21553429 (Version 3)
Quarter: 2022Q4

REPORT INFORMATION
  Report Type: Spontaneous
  Country: US (occurrence: US)
  Receive Date: 20221104
  Receipt Date: 20221212
  Transmission Date: 20230113
  Serious: Yes (Hospitalization, Other)
  Sender: FDA-Public Use
  Company Number: US-GSKCCFUS-Case-01544302_AE-87414

PATIENT

DRUGS (1)
  1. TRELEGY ELLIPTA [Suspect]
     Active Substance: FLUTICASONE FUROATE\UMECLIDINIUM BROMIDE\VILANTEROL TRIFENATATE
     Indication: Product used for unknown indication
     Dosage: UNK 200/62.5/25MCG

REACTIONS (5)
  - Cerebrovascular accident [Unknown]
  - Pneumonia [Unknown]
  - Anaemia [Unknown]
  - Wrong technique in device usage process [Unknown]
  - Product complaint [Unknown]
